FAERS Safety Report 20394219 (Version 2)
Quarter: 2022Q1

REPORT INFORMATION
  Report Type: Spontaneous
  Country: CN (occurrence: CN)
  Receive Date: 20220129
  Receipt Date: 20220203
  Transmission Date: 20220423
  Serious: Yes (Other)
  Sender: FDA-Public Use
  Company Number: CN-ABBVIE-22K-035-4255798-00

PATIENT
  Age: 40 Year
  Sex: Female

DRUGS (1)
  1. VALPROATE SODIUM [Suspect]
     Active Substance: VALPROATE SODIUM
     Indication: Product used for unknown indication
     Route: 065

REACTIONS (8)
  - Leukopenia [Unknown]
  - Granulocytopenia [Unknown]
  - Generalised tonic-clonic seizure [Unknown]
  - Epilepsy [Unknown]
  - Loss of consciousness [Unknown]
  - Seizure [Unknown]
  - Foaming at mouth [Unknown]
  - Unevaluable event [Unknown]
